FAERS Safety Report 5010439-1 (Version None)
Quarter: 2006Q2

REPORT INFORMATION
  Report Type: 
  Country: None (occurrence: None)
  Receive Date: 20060523
  Receipt Date: 20060510
  Transmission Date: 20061013
  Serious: Yes (Hospitalization)
  Sender: FDA-Public Use
  Company Number: 2006062262

PATIENT
  Age: 69 Year
  Sex: Male

DRUGS (3)
  1. SUTENT [Suspect]
     Indication: RENAL CELL CARCINOMA STAGE UNSPECIFIED
     Dosage: 50 MG (50 MG, 2IN 1 D), ORAL; SEE IMAGE
     Route: 048
     Dates: start: 20060115, end: 20060212
  2. SUTENT [Suspect]
     Indication: RENAL CELL CARCINOMA STAGE UNSPECIFIED
     Dosage: 50 MG (50 MG, 2IN 1 D), ORAL; SEE IMAGE
     Route: 048
     Dates: start: 20060228, end: 20060328
  3. SUTENT [Suspect]
     Indication: RENAL CELL CARCINOMA STAGE UNSPECIFIED
     Dosage: 50 MG (50 MG, 2IN 1 D), ORAL; SEE IMAGE
     Route: 048
     Dates: start: 20060414

REACTIONS (2)
  - DERMATITIS [None]
  - SKIN LESION [None]
